FAERS Safety Report 7102113-2 (Version None)
Quarter: 2010Q4

REPORT INFORMATION
  Report Type: 
  Country: None (occurrence: None)
  Receive Date: 20101115
  Receipt Date: 20101104
  Transmission Date: 20110411
  Serious: Yes (Hospitalization)
  Sender: FDA-Public Use
  Company Number: US-BIOGENIDEC-2010BI007086

PATIENT
  Age: 53 Year
  Sex: Female
  Weight: 99 kg

DRUGS (1)
  1. AVONEX [Suspect]
     Indication: MULTIPLE SCLEROSIS
     Route: 030
     Dates: start: 20070724

REACTIONS (4)
  - ABASIA [None]
  - CYSTITIS [None]
  - FALL [None]
  - STRESS [None]
